FAERS Safety Report 5477673-8 (Version None)
Quarter: 2007Q4

REPORT INFORMATION
  Report Type: 
  Country: None (occurrence: None)
  Receive Date: 20071003
  Receipt Date: 20071003
  Transmission Date: 20080405
  Serious: Yes (Other)
  Sender: FDA-Public Use
  Company Number: None

PATIENT
  Age: 38 Year
  Sex: Female
  Weight: 57.1 kg

DRUGS (2)
  1. MEROPENEM [Suspect]
     Indication: INFECTION PROPHYLAXIS
     Dosage: 500MG DAILY IV
     Route: 042
     Dates: start: 20070920
  2. IMATINIB [Suspect]
     Indication: NEOPLASM MALIGNANT
     Dosage: 800MG DAILY PO
     Route: 048
     Dates: start: 20070919

REACTIONS (1)
  - STEVENS-JOHNSON SYNDROME [None]
